FAERS Safety Report 8019180-4 (Version None)
Quarter: 2011Q4

REPORT INFORMATION
  Report Type: 
  Country: None (occurrence: None)
  Receive Date: 20111227
  Receipt Date: 20110906
  Transmission Date: 20120403
  Serious: Yes (Hospitalization)
  Sender: FDA-Public Use
  Company Number: OTH-PAT-2011005

PATIENT
  Age: 8 Month
  Sex: Female

DRUGS (1)
  1. CARBAGLU [Suspect]
     Indication: AMINO ACID METABOLISM DISORDER
     Dosage: 400MG/DAY - 600MG/DAY PO
     Route: 048
     Dates: start: 20110520

REACTIONS (1)
  - URINARY TRACT INFECTION [None]
